FAERS Safety Report 20779235 (Version 1)
Quarter: 2022Q2

REPORT INFORMATION
  Report Type: Spontaneous
  Country: US (occurrence: US)
  Receive Date: 20220503
  Receipt Date: 20220503
  Transmission Date: 20220720
  Serious: No
  Sender: FDA-Public Use
  Company Number: US-PFIZER INC-202101815351

PATIENT
  Age: 62 Year
  Sex: Female

DRUGS (1)
  1. ESTRING [Suspect]
     Active Substance: ESTRADIOL
     Dosage: 2 MG

REACTIONS (3)
  - Device issue [Unknown]
  - Muscle spasms [Unknown]
  - Malaise [Unknown]
